FAERS Safety Report 25800879 (Version 2)
Quarter: 2025Q4

REPORT INFORMATION
  Report Type: Spontaneous
  Country: EU (occurrence: EU)
  Receive Date: 20250915
  Receipt Date: 20251006
  Transmission Date: 20260118
  Serious: Yes (Hospitalization)
  Sender: ABBVIE
  Company Number: EU-ABBVIE-6401171

PATIENT
  Age: 41 Year
  Sex: Female

DRUGS (2)
  1. RINVOQ [Suspect]
     Active Substance: UPADACITINIB
     Indication: Colitis ulcerative
     Dosage: FORM STRENGTH - 45 MILLIGRAM
     Route: 048
     Dates: start: 20250610, end: 20250728
  2. IMURAN [Suspect]
     Active Substance: AZATHIOPRINE
     Indication: Product used for unknown indication
     Route: 065

REACTIONS (9)
  - Hepatitis E [Recovered/Resolved]
  - Hepatic enzyme increased [Unknown]
  - Fatigue [Unknown]
  - Investigation abnormal [Unknown]
  - Hepatic enzyme abnormal [Unknown]
  - Hospitalisation [Unknown]
  - Hepatitis chronic active [Unknown]
  - Hepatic steatosis [Unknown]
  - Gastroenteritis [Unknown]

NARRATIVE: CASE EVENT DATE: 20250101
